FAERS Safety Report 16995525 (Version 1)
Quarter: 2019Q4

REPORT INFORMATION
  Report Type: Spontaneous
  Country: CN (occurrence: CN)
  Receive Date: 20191105
  Receipt Date: 20191105
  Transmission Date: 20200122
  Serious: Yes (Other)
  Sender: FDA-Public Use
  Company Number: CN-BAXTER-2019BAX022068

PATIENT
  Age: 2 Year
  Sex: Male
  Weight: 11 kg

DRUGS (22)
  1. 0.9% SODIUM CHLORIDE INJECTION [Suspect]
     Active Substance: SODIUM CHLORIDE
     Dosage: VINCRISTINE 0.8MG+0.9% SODIUM CHLORIDE 20ML
     Route: 042
     Dates: start: 20191002, end: 20191002
  2. 0.9% SODIUM CHLORIDE INJECTION [Suspect]
     Active Substance: SODIUM CHLORIDE
     Dosage: CYTOSAR 0.025G + DEXAMETHASONE 2.5MG + 0.9% SODIUM CHLORIDE 3ML
     Route: 037
     Dates: start: 20191002, end: 20191002
  3. CYTOSAR [Suspect]
     Active Substance: CYTARABINE
     Dosage: DOSE REINTRODUCED (CYTOSAR + DEXAMETHASONE + 0.9% SODIUM CHLORIDE)
     Route: 037
     Dates: start: 201910
  4. 5% GLUCOSE  INJECTION [Suspect]
     Active Substance: DEXTROSE
     Indication: MEDICATION DILUTION
     Dosage: CYTARABINE 0.026G +5% GLUCOSE 50ML Q12H
     Route: 041
     Dates: start: 20191002, end: 20191009
  5. CYTARABINE HYDROCHLORIDE [Suspect]
     Active Substance: CYTARABINE HYDROCHLORIDE
     Dosage: DOSE REINTRODUCED (CYTARABINE +5% GLUCOSE)
     Route: 041
     Dates: start: 201910
  6. 0.9% SODIUM CHLORIDE INJECTION [Suspect]
     Active Substance: SODIUM CHLORIDE
     Dosage: DOSE REINTRODUCED (VINCRISTINE + 0.9% SODIUM CHLORIDE)
     Route: 042
     Dates: start: 201910
  7. 5% GLUCOSE  INJECTION [Suspect]
     Active Substance: DEXTROSE
     Dosage: DOSE REINTRODUCED (CYTARABINE +5% GLUCOSE)
     Route: 041
     Dates: start: 201910
  8. DEXAMETHASONE SODIUM PHOSPHATE. [Suspect]
     Active Substance: DEXAMETHASONE SODIUM PHOSPHATE
     Indication: ACUTE LYMPHOCYTIC LEUKAEMIA
     Dosage: CYTOSAR 0.025G + DEXAMETHASONE 2.5MG + 0.9% SODIUM CHLORIDE 3ML
     Route: 037
     Dates: start: 20191002, end: 20191002
  9. AIYANG (PEGASPARGASE) [Suspect]
     Active Substance: PEGASPARGASE
     Dosage: DOSE REINTRODUCED
     Route: 030
     Dates: start: 201910
  10. ENDOXAN [Suspect]
     Active Substance: CYCLOPHOSPHAMIDE
     Dosage: DOSE REINTRODUCED (ENDOXAN +0.9% SODIUM CHLORIDE)
     Route: 041
     Dates: start: 201910
  11. 0.9% SODIUM CHLORIDE INJECTION [Suspect]
     Active Substance: SODIUM CHLORIDE
     Indication: MEDICATION DILUTION
     Dosage: ENDOXAN 0.58G+0.9% SODIUM CHLORIDE 250ML
     Route: 041
     Dates: start: 20191002, end: 20191002
  12. 0.9% SODIUM CHLORIDE INJECTION [Suspect]
     Active Substance: SODIUM CHLORIDE
     Dosage: VINCRISTINE 0.8MG+0.9% SODIUM CHLORIDE 20ML
     Route: 042
     Dates: start: 20191009, end: 20191009
  13. 0.9% SODIUM CHLORIDE INJECTION [Suspect]
     Active Substance: SODIUM CHLORIDE
     Dosage: DOSE REINTRODUCED (CYTOSAR + DEXAMETHASONE + 0.9% SODIUM CHLORIDE)
     Route: 037
     Dates: start: 201910
  14. AIYANG (PEGASPARGASE) [Suspect]
     Active Substance: PEGASPARGASE
     Indication: ACUTE LYMPHOCYTIC LEUKAEMIA
     Route: 030
     Dates: start: 20191005, end: 20191005
  15. CYTARABINE HYDROCHLORIDE [Suspect]
     Active Substance: CYTARABINE HYDROCHLORIDE
     Indication: ACUTE LYMPHOCYTIC LEUKAEMIA
     Dosage: CYTARABINE 0.026G +5% GLUCOSE 50ML Q12H
     Route: 041
     Dates: start: 20191002, end: 20191009
  16. DEXAMETHASONE SODIUM PHOSPHATE. [Suspect]
     Active Substance: DEXAMETHASONE SODIUM PHOSPHATE
     Dosage: DOSE REINTRODUCED (CYTOSAR + DEXAMETHASONE + 0.9% SODIUM CHLORIDE)
     Route: 037
     Dates: start: 201910
  17. VINCRISTINE SULFATE. [Suspect]
     Active Substance: VINCRISTINE SULFATE
     Indication: ACUTE LYMPHOCYTIC LEUKAEMIA
     Dosage: VINCRISTINE 0.8MG+0.9% SODIUM CHLORIDE 20ML
     Route: 042
     Dates: start: 20191002, end: 20191002
  18. VINCRISTINE SULFATE. [Suspect]
     Active Substance: VINCRISTINE SULFATE
     Dosage: VINCRISTINE 0.8MG+0.9% SODIUM CHLORIDE 20ML
     Route: 042
     Dates: start: 20191009, end: 20191009
  19. ENDOXAN [Suspect]
     Active Substance: CYCLOPHOSPHAMIDE
     Indication: ACUTE LYMPHOCYTIC LEUKAEMIA
     Dosage: ENDOXAN 0.58G+0.9% SODIUM CHLORIDE 250ML
     Route: 041
     Dates: start: 20191002, end: 20191002
  20. 0.9% SODIUM CHLORIDE INJECTION [Suspect]
     Active Substance: SODIUM CHLORIDE
     Dosage: DOSE REINTRODUCED (ENDOXAN +0.9% SODIUM CHLORIDE)
     Route: 041
     Dates: start: 201910
  21. CYTOSAR [Suspect]
     Active Substance: CYTARABINE
     Indication: ACUTE LYMPHOCYTIC LEUKAEMIA
     Dosage: CYTOSAR 0.025G + DEXAMETHASONE 2.5MG + 0.9% SODIUM CHLORIDE 3ML
     Route: 037
     Dates: start: 20191002, end: 20191002
  22. VINCRISTINE SULFATE. [Suspect]
     Active Substance: VINCRISTINE SULFATE
     Dosage: DOSE REINTRODUCED (VINCRISTINE +0.9% SODIUM CHLORIDE)
     Route: 042
     Dates: start: 201910

REACTIONS (1)
  - Bone marrow failure [Recovering/Resolving]

NARRATIVE: CASE EVENT DATE: 20191013
